FAERS Safety Report 16825387 (Version 1)
Quarter: 2019Q3

REPORT INFORMATION
  Report Type: Spontaneous
  Country: GB (occurrence: GB)
  Receive Date: 20190919
  Receipt Date: 20190919
  Transmission Date: 20191005
  Serious: Yes (Other)
  Sender: FDA-Public Use
  Company Number: GB-SUN PHARMACEUTICAL INDUSTRIES LTD-2019RR-221156

PATIENT
  Sex: Male

DRUGS (1)
  1. CLARITHROMYCIN 500MG FILM COATED TABLETS [Suspect]
     Active Substance: CLARITHROMYCIN
     Indication: SINUSITIS
     Dosage: 500 MILLIGRAM, UNK
     Route: 048

REACTIONS (1)
  - Charles Bonnet syndrome [Recovered/Resolved]
